FAERS Safety Report 7666051-9 (Version None)
Quarter: 2011Q3

REPORT INFORMATION
  Report Type: 
  Country: None (occurrence: None)
  Receive Date: 20110806
  Receipt Date: 20110610
  Transmission Date: 20111222
  Serious: No
  Sender: FDA-Public Use
  Company Number: US-ABBOTT-11P-163-0728507-00

PATIENT
  Sex: Female
  Weight: 75.364 kg

DRUGS (6)
  1. NIASPAN [Suspect]
     Indication: BLOOD CHOLESTEROL INCREASED
     Route: 048
     Dates: start: 20110513
  2. GLUMETZA [Concomitant]
     Indication: DIABETES MELLITUS
  3. METOPROLOL TARTRATE [Concomitant]
     Indication: BLOOD PRESSURE
  4. METOPROLOL TARTRATE [Concomitant]
     Indication: HEART RATE INCREASED
  5. METFORMIN HCL [Concomitant]
     Indication: GLUCOSE TOLERANCE IMPAIRED
  6. VIT D [Concomitant]
     Indication: PRODUCT USED FOR UNKNOWN INDICATION

REACTIONS (7)
  - PARAESTHESIA [None]
  - FEELING HOT [None]
  - TERMINAL INSOMNIA [None]
  - ERYTHEMA [None]
  - BURNING SENSATION [None]
  - PRURITUS [None]
  - FLUSHING [None]
